FAERS Safety Report 14123052 (Version 1)
Quarter: 2017Q4

REPORT INFORMATION
  Report Type: Spontaneous
  Country: US (occurrence: US)
  Receive Date: 20171024
  Receipt Date: 20171024
  Transmission Date: 20180321
  Serious: Yes (Other)
  Sender: FDA-Public Use
  Company Number: None

PATIENT
  Age: 65 Year
  Sex: Female
  Weight: 56.25 kg

DRUGS (1)
  1. LISTERINE TOTAL CARE [Suspect]
     Active Substance: SODIUM FLUORIDE
     Indication: DENTAL DISORDER PROPHYLAXIS
     Dosage: ?          QUANTITY:2 TABLESPOON(S);OTHER ROUTE:MOUTHWASH RINSE + SPIT OUT?
     Dates: start: 20171015, end: 20171024

REACTIONS (1)
  - Trichoglossia [None]

NARRATIVE: CASE EVENT DATE: 20171024
